FAERS Safety Report 18052279 (Version 2)
Quarter: 2023Q1

REPORT INFORMATION
  Report Type: Report from Study
  Country: US (occurrence: US)
  Receive Date: 20200721
  Receipt Date: 20230102
  Transmission Date: 20230417
  Serious: No
  Sender: FDA-Public Use
  Company Number: US-TAKEDA-2020TUS031265

PATIENT
  Sex: Female

DRUGS (1)
  1. VORTIOXETINE [Suspect]
     Active Substance: VORTIOXETINE
     Indication: Major depression
     Dosage: UNK
     Route: 048
     Dates: start: 2017

REACTIONS (5)
  - Road traffic accident [Unknown]
  - Depressive symptom [Unknown]
  - Illness [Not Recovered/Not Resolved]
  - Eye operation [Unknown]
  - Nausea [Unknown]

NARRATIVE: CASE EVENT DATE: 20220101
